FAERS Safety Report 17668965 (Version 1)
Quarter: 2020Q2

REPORT INFORMATION
  Report Type: Spontaneous
  Country: JP (occurrence: JP)
  Receive Date: 20200415
  Receipt Date: 20200415
  Transmission Date: 20200713
  Serious: Yes (Life-Threatening, Hospitalization, Disabling, Other)
  Sender: FDA-Public Use
  Company Number: JP-AMGEN-JPNSP2019199896

PATIENT
  Age: 78 Year
  Sex: Female
  Weight: 46 kg

DRUGS (9)
  1. GASMOTIN [Concomitant]
     Active Substance: MOSAPRIDE CITRATE
     Indication: CHRONIC GASTRITIS
     Dosage: 5 MILLIGRAM, BID
     Dates: start: 20170204
  2. TAKECAB [Concomitant]
     Active Substance: VONOPRAZAN FUMARATE
     Indication: GASTROOESOPHAGEAL REFLUX DISEASE
     Dosage: 110 MILLIGRAM, QD
     Dates: start: 20170204
  3. JUVELA N [Concomitant]
     Active Substance: TOCOPHERYL NICOTINATE, D-.ALPHA.
     Indication: DYSLIPIDAEMIA
     Dosage: 100 MILLIGRAM, BID
     Dates: start: 20090124, end: 20191105
  4. EVENITY [Suspect]
     Active Substance: ROMOSOZUMAB-AQQG
     Indication: OSTEOPOROSIS
     Dosage: 210 MILLIGRAM
     Route: 058
     Dates: start: 2019
  5. OPALMON [Concomitant]
     Active Substance: LIMAPROST
     Indication: SPINAL STENOSIS
     Dosage: 5 MILLIGRAM, TID
     Dates: start: 20190124
  6. LOXONIN [Concomitant]
     Active Substance: LOXOPROFEN SODIUM
     Indication: OSTEOPOROSIS
     Dosage: 60 MILLIGRAM, QD
     Dates: start: 20160401, end: 20191105
  7. AMLODIPINE [AMLODIPINE BESILATE] [Concomitant]
     Active Substance: AMLODIPINE BESYLATE
     Indication: HYPERTENSION
     Dosage: 5 MILLIGRAM, QD
     Dates: start: 20080607, end: 20190111
  8. METHYCOBAL [Concomitant]
     Active Substance: METHYLCOBALAMIN
     Indication: NEURALGIA
     Dosage: 500 MICROGRAM, TID
     Dates: start: 20190124, end: 20191105
  9. CEROCRAL [Concomitant]
     Active Substance: IFENPRODIL
     Indication: LACUNAR INFARCTION
     Dosage: 20 MILLIGRAM, BID
     Dates: start: 20111003

REACTIONS (6)
  - Upper respiratory tract inflammation [Unknown]
  - Constipation [Unknown]
  - Blood pressure decreased [Recovered/Resolved]
  - Cerebral infarction [Recovered/Resolved with Sequelae]
  - Cardiac failure acute [Unknown]
  - Pneumonia [Recovering/Resolving]

NARRATIVE: CASE EVENT DATE: 201911
